FAERS Safety Report 16420943 (Version 1)
Quarter: 2019Q2

REPORT INFORMATION
  Report Type: Spontaneous
  Country: US (occurrence: US)
  Receive Date: 20190611
  Receipt Date: 20190611
  Transmission Date: 20190711
  Serious: Yes (Hospitalization)
  Sender: FDA-Public Use
  Company Number: None

PATIENT
  Sex: Male

DRUGS (7)
  1. HYDROCODONE BITARTRATE AND ACETAMINOPHEN [Concomitant]
     Active Substance: ACETAMINOPHEN\HYDROCODONE BITARTRATE
  2. MINOXIDIL. [Concomitant]
     Active Substance: MINOXIDIL
  3. TRIESENCE [Suspect]
     Active Substance: TRIAMCINOLONE ACETONIDE
     Indication: CYSTOID MACULAR OEDEMA
     Dosage: ?          OTHER FREQUENCY:EVERY FOUR WEEKS;OTHER ROUTE:INTRAVITREAL?
     Dates: start: 20190417
  4. MULTIVITAMIN [Concomitant]
     Active Substance: VITAMINS
  5. LANTUS [Concomitant]
     Active Substance: INSULIN GLARGINE
  6. IRON [Concomitant]
     Active Substance: IRON
  7. FEROSUL [Concomitant]

REACTIONS (1)
  - Hospitalisation [None]
